FAERS Safety Report 21067946 (Version 4)
Quarter: 2022Q3

REPORT INFORMATION
  Report Type: Spontaneous
  Country: FR (occurrence: FR)
  Receive Date: 20220712
  Receipt Date: 20220808
  Transmission Date: 20221027
  Serious: Yes (Other)
  Sender: FDA-Public Use
  Company Number: FR-002147023-NVSC2022FR141123

PATIENT
  Age: 27 Year
  Sex: Female

DRUGS (4)
  1. MIRTAZAPINE [Suspect]
     Active Substance: MIRTAZAPINE
     Indication: Depression
     Dosage: UNK
  2. TROPATEPINE [Suspect]
     Active Substance: TROPATEPINE
     Indication: Depression
     Dosage: UNK
  3. CHLORPROMAZINE [Suspect]
     Active Substance: CHLORPROMAZINE
     Indication: Depression
     Dosage: UNK
  4. ZOPICLONE [Suspect]
     Active Substance: ZOPICLONE
     Indication: Depression
     Dosage: UNK

REACTIONS (2)
  - Product use in unapproved indication [Unknown]
  - Drug reaction with eosinophilia and systemic symptoms [Recovering/Resolving]
